FAERS Safety Report 10926327 (Version 2)
Quarter: 2015Q2

REPORT INFORMATION
  Report Type: Spontaneous
  Country: NL (occurrence: None)
  Receive Date: 20150316
  Receipt Date: 20150406
  Transmission Date: 20150821
  Serious: Yes (Death, Life-Threatening)
  Sender: FDA-Public Use
  Company Number: 2787410

PATIENT
  Age: 63 Year
  Sex: Male

DRUGS (5)
  1. CYTARABINE. [Suspect]
     Active Substance: CYTARABINE
     Indication: ACUTE MYELOID LEUKAEMIA
     Dosage: CYCLICAL
     Dates: start: 20130716, end: 20130722
  2. CLOFARABINE [Suspect]
     Active Substance: CLOFARABINE
     Indication: ACUTE MYELOID LEUKAEMIA
     Dosage: CYCLICAL
     Dates: start: 20130716, end: 20130720
  3. CIPROFLOXACIN HYDROCHLORIDE. [Concomitant]
     Active Substance: CIPROFLOXACIN HYDROCHLORIDE
  4. AMPHOTERICIN [Concomitant]
     Active Substance: AMPHOTERICIN B
  5. IDARUBICIN [Suspect]
     Active Substance: IDARUBICIN
     Indication: ACUTE MYELOID LEUKAEMIA
     Dosage: CYCLICAL
     Dates: start: 20130716, end: 20130718

REACTIONS (3)
  - Septic shock [None]
  - Respiratory failure [None]
  - Colitis [None]

NARRATIVE: CASE EVENT DATE: 20130729
